FAERS Safety Report 8242170-3 (Version None)
Quarter: 2012Q1

REPORT INFORMATION
  Report Type: 
  Country: None (occurrence: None)
  Receive Date: 20120314
  Receipt Date: 20110401
  Transmission Date: 20120608
  Serious: No
  Sender: FDA-Public Use
  Company Number: PHHY2011US27648

PATIENT
  Age: 44 Year
  Sex: Male

DRUGS (1)
  1. FANAPT [Suspect]
     Dosage: 6 MG, QD

REACTIONS (2)
  - MOOD ALTERED [None]
  - ANGER [None]
